FAERS Safety Report 4735596-3 (Version None)
Quarter: 2005Q3

REPORT INFORMATION
  Report Type: 
  Country: None (occurrence: None)
  Receive Date: 20050801
  Receipt Date: 20050801
  Transmission Date: 20060218
  Serious: Yes (Life-Threatening)
  Sender: FDA-Public Use
  Company Number: None

PATIENT
  Age: 80 Year
  Sex: Male
  Weight: 75 kg

DRUGS (1)
  1. IV CONTRAST DYE IOHEXOL [Suspect]
     Indication: COMPUTERISED TOMOGRAM
     Route: 042

REACTIONS (9)
  - ABDOMINAL PAIN [None]
  - ANURIA [None]
  - BACK PAIN [None]
  - BLOOD CREATININE INCREASED [None]
  - HEPATIC CANCER METASTATIC [None]
  - INTESTINAL MASS [None]
  - NECK PAIN [None]
  - ORAL INTAKE REDUCED [None]
  - REFUSAL OF TREATMENT BY PATIENT [None]
